FAERS Safety Report 20888898 (Version 1)
Quarter: 2022Q2

REPORT INFORMATION
  Report Type: Spontaneous
  Country: US (occurrence: US)
  Receive Date: 20220529
  Receipt Date: 20220529
  Transmission Date: 20220720
  Serious: Yes (Other)
  Sender: FDA-Public Use
  Company Number: US-SA-SAC20220526000798

PATIENT
  Age: 57 Year
  Sex: Male

DRUGS (1)
  1. ZANTAC [Suspect]
     Active Substance: RANITIDINE HYDROCHLORIDE
     Dosage: DOSE AND FREQUENCY: OTHER
     Dates: start: 198601, end: 202012

REACTIONS (1)
  - Prostate cancer stage I [Recovered/Resolved]

NARRATIVE: CASE EVENT DATE: 20180101
